FAERS Safety Report 7550068-9 (Version None)
Quarter: 2011Q2

REPORT INFORMATION
  Report Type: 
  Country: None (occurrence: None)
  Receive Date: 20110615
  Receipt Date: 20110224
  Transmission Date: 20111010
  Serious: No
  Sender: FDA-Public Use
  Company Number: US-TYCO HEALTHCARE/MALLINCKRODT-T201100515

PATIENT
  Age: 44 Year
  Sex: Female

DRUGS (3)
  1. ULTRATAG [Suspect]
     Indication: MULTIPLE GATED ACQUISITION SCAN
     Dosage: UNK
     Route: 042
     Dates: start: 20110224, end: 20110224
  2. ULTRA-TECHNEKOW [Concomitant]
     Indication: MULTIPLE GATED ACQUISITION SCAN
     Dosage: 30 MCI, UNK
     Route: 042
     Dates: start: 20110224, end: 20110224
  3. HEPARIN [Concomitant]
     Dosage: 0.5 ML, UNK
     Dates: start: 20110224, end: 20110224

REACTIONS (1)
  - DRUG INEFFECTIVE [None]
